FAERS Safety Report 13866471 (Version 1)
Quarter: 2017Q3

REPORT INFORMATION
  Report Type: Spontaneous
  Country: US (occurrence: US)
  Receive Date: 20170814
  Receipt Date: 20170814
  Transmission Date: 20171127
  Serious: No
  Sender: FDA-Public Use
  Company Number: US-ROCHE-665623

PATIENT
  Age: 6 Year
  Sex: Female
  Weight: 29.5 kg

DRUGS (2)
  1. TAMIFLU [Suspect]
     Active Substance: OSELTAMIVIR PHOSPHATE
     Indication: INFLUENZA
     Dosage: THE PATIENT RECEIVED 10 DOSES FROM 600 MG TOTAL
     Route: 048
     Dates: start: 20091008, end: 20091013
  2. TAMIFLU [Suspect]
     Active Substance: OSELTAMIVIR PHOSPHATE
     Dosage: THE PATIENT RECEIVED 10 DOSES FROM 600 MG TOTAL
     Route: 048

REACTIONS (1)
  - Influenza [Unknown]

NARRATIVE: CASE EVENT DATE: 20091022
